FAERS Safety Report 7460513-5 (Version None)
Quarter: 2011Q2

REPORT INFORMATION
  Report Type: 
  Country: None (occurrence: None)
  Receive Date: 20110505
  Receipt Date: 20110426
  Transmission Date: 20111010
  Serious: Yes (Other)
  Sender: FDA-Public Use
  Company Number: JP-MERCK-1102USA03692

PATIENT
  Age: 87 Year
  Sex: Male
  Weight: 33 kg

DRUGS (7)
  1. LAC-B [Concomitant]
     Indication: CONSTIPATION
     Route: 048
  2. SELARA [Concomitant]
     Indication: HYPERTENSION
     Route: 048
     Dates: start: 20081101
  3. CIBENOL [Suspect]
     Indication: ARRHYTHMIA
     Route: 048
     Dates: start: 20000811
  4. THYRADIN-S [Concomitant]
     Indication: HYPOTHYROIDISM
     Route: 048
     Dates: start: 20101210
  5. JANUVIA [Suspect]
     Indication: DIABETES MELLITUS
     Route: 048
     Dates: start: 20110122, end: 20110207
  6. ACTOS [Concomitant]
     Route: 048
     Dates: end: 20110121
  7. MAGLAX [Concomitant]
     Indication: CONSTIPATION
     Route: 048
     Dates: start: 20040825

REACTIONS (2)
  - HYPOGLYCAEMIA [None]
  - HYPOGLYCAEMIC COMA [None]
